FAERS Safety Report 12418833 (Version 1)
Quarter: 2016Q2

REPORT INFORMATION
  Report Type: Spontaneous
  Country: US (occurrence: None)
  Receive Date: 20160527
  Receipt Date: 20160527
  Transmission Date: 20160815
  Serious: Yes (Disabling)
  Sender: FDA-Public Use
  Company Number: None

PATIENT
  Age: 37 Year
  Sex: Female
  Weight: 63.5 kg

DRUGS (12)
  1. BUTERBURR [Concomitant]
  2. VITAMIN B [Concomitant]
     Active Substance: VITAMIN B
  3. NEURONTIN [Concomitant]
     Active Substance: GABAPENTIN
  4. GLUTATHIONE [Concomitant]
     Active Substance: GLUTATHIONE
  5. VITAMIN C [Concomitant]
     Active Substance: ASCORBIC ACID
  6. CURAMED [Concomitant]
  7. IBUPROFEN. [Concomitant]
     Active Substance: IBUPROFEN
  8. OXYGEN. [Concomitant]
     Active Substance: OXYGEN
  9. IV INFUSION [Concomitant]
  10. B-12 LOZENGES [Concomitant]
  11. MAGNESIUM [Concomitant]
     Active Substance: MAGNESIUM
  12. LEVOFLOXACIN. [Suspect]
     Active Substance: LEVOFLOXACIN
     Indication: SINUSITIS
     Route: 048

REACTIONS (16)
  - Trigeminal neuralgia [None]
  - Arthralgia [None]
  - Vomiting [None]
  - Facial pain [None]
  - Dizziness [None]
  - Feeling abnormal [None]
  - Neuropathy peripheral [None]
  - Impaired work ability [None]
  - Balance disorder [None]
  - Pain in jaw [None]
  - Pain in extremity [None]
  - Autoimmune disorder [None]
  - Myalgia [None]
  - Nausea [None]
  - Impaired driving ability [None]
  - Cluster headache [None]

NARRATIVE: CASE EVENT DATE: 20160319
